FAERS Safety Report 20885542 (Version 1)
Quarter: 2022Q2

REPORT INFORMATION
  Report Type: Spontaneous
  Country: US (occurrence: US)
  Receive Date: 20220527
  Receipt Date: 20220527
  Transmission Date: 20220721
  Serious: No
  Sender: FDA-Public Use
  Company Number: US-PERRIGO-22US004861

PATIENT
  Age: 63 Year
  Sex: Female
  Weight: 78.005 kg

DRUGS (4)
  1. DICLOFENAC SODIUM [Suspect]
     Active Substance: DICLOFENAC SODIUM
     Indication: Thoracic outlet syndrome
     Dosage: 20 MG, UNK
     Route: 061
     Dates: start: 20220326
  2. DICLOFENAC SODIUM [Suspect]
     Active Substance: DICLOFENAC SODIUM
     Indication: Fibromyalgia
  3. LIDOCAINE [Suspect]
     Active Substance: LIDOCAINE
     Indication: Thoracic outlet syndrome
     Dosage: UNK, UNK
     Route: 061
  4. LIDOCAINE [Suspect]
     Active Substance: LIDOCAINE
     Indication: Fibromyalgia

REACTIONS (7)
  - Eye irritation [Recovered/Resolved]
  - Feeling hot [Recovered/Resolved]
  - Peripheral coldness [Recovered/Resolved]
  - Product administered at inappropriate site [Unknown]
  - Accidental exposure to product [Recovered/Resolved]
  - Wrong technique in product usage process [Unknown]
  - Off label use [Unknown]

NARRATIVE: CASE EVENT DATE: 20220326
